FAERS Safety Report 10551104 (Version 1)
Quarter: 2014Q4

REPORT INFORMATION
  Report Type: Spontaneous
  Country: US (occurrence: None)
  Receive Date: 20141028
  Receipt Date: 20141028
  Transmission Date: 20150529
  Serious: Yes (Disabling)
  Sender: FDA-Public Use
  Company Number: None

PATIENT
  Age: 32 Year
  Sex: Female
  Weight: 54.43 kg

DRUGS (2)
  1. TOPAMAX [Suspect]
     Active Substance: TOPIRAMATE
     Indication: AFFECTIVE DISORDER
     Dosage: 3 PILLS?ONCE DAILY?TAKEN BY MOUTH
     Route: 048
  2. TOPAMAX [Suspect]
     Active Substance: TOPIRAMATE
     Indication: BULIMIA NERVOSA
     Dosage: 3 PILLS?ONCE DAILY?TAKEN BY MOUTH
     Route: 048

REACTIONS (5)
  - Confusional state [None]
  - Panic attack [None]
  - Fatigue [None]
  - Drug dependence [None]
  - Pruritus generalised [None]

NARRATIVE: CASE EVENT DATE: 20141027
